FAERS Safety Report 18850690 (Version 1)
Quarter: 2021Q1

REPORT INFORMATION
  Report Type: Spontaneous
  Country: DE (occurrence: DE)
  Receive Date: 20210205
  Receipt Date: 20210205
  Transmission Date: 20210420
  Serious: Yes (Other)
  Sender: FDA-Public Use
  Company Number: NVSC2021DE022300

PATIENT
  Sex: Female

DRUGS (2)
  1. ULUNAR BREEZHALER [Suspect]
     Active Substance: GLYCOPYRROLATE\INDACATEROL MALEATE
     Indication: CHRONIC OBSTRUCTIVE PULMONARY DISEASE
     Dosage: 2 DF, QD
     Route: 065
     Dates: start: 202101
  2. ULUNAR BREEZHALER [Suspect]
     Active Substance: GLYCOPYRROLATE\INDACATEROL MALEATE
     Dosage: 1 DF, QD
     Route: 065
     Dates: start: 202101

REACTIONS (4)
  - Overdose [Unknown]
  - Fatigue [Unknown]
  - Diplopia [Recovering/Resolving]
  - Facial paresis [Unknown]

NARRATIVE: CASE EVENT DATE: 202101
